FAERS Safety Report 9281223 (Version 2)
Quarter: 2013Q2

REPORT INFORMATION
  Report Type: Spontaneous
  Country: US (occurrence: US)
  Receive Date: 20130509
  Receipt Date: 20130515
  Transmission Date: 20140414
  Serious: No
  Sender: FDA-Public Use
  Company Number: US-TEVA-403979USA

PATIENT
  Age: 77 Year
  Sex: Male

DRUGS (1)
  1. PROAIR HFA [Suspect]
     Dates: start: 20130507

REACTIONS (1)
  - Anxiety [Recovered/Resolved]
